FAERS Safety Report 15619127 (Version 1)
Quarter: 2018Q4

REPORT INFORMATION
  Report Type: Spontaneous
  Country: CA (occurrence: CA)
  Receive Date: 20181114
  Receipt Date: 20181114
  Transmission Date: 20190205
  Serious: Yes (Other)
  Sender: FDA-Public Use
  Company Number: CA-SAKK-2018SA309581AA

PATIENT
  Sex: Female

DRUGS (2)
  1. PLAQUENIL [Suspect]
     Active Substance: HYDROXYCHLOROQUINE SULFATE
  2. ARAVA [Suspect]
     Active Substance: LEFLUNOMIDE
     Dosage: 10 MG

REACTIONS (2)
  - Drug ineffective [Unknown]
  - Diverticulitis [Unknown]
